FAERS Safety Report 6006310-9 (Version None)
Quarter: 2008Q4

REPORT INFORMATION
  Report Type: 
  Country: None (occurrence: None)
  Receive Date: 20081216
  Receipt Date: 20081216
  Transmission Date: 20090506
  Serious: Yes (Hospitalization)
  Sender: FDA-Public Use
  Company Number: None

PATIENT
  Age: 59 Year
  Sex: Male

DRUGS (2)
  1. IODIXANOL [Suspect]
     Indication: SURGERY
     Dosage: OTHER IV
     Route: 042
     Dates: start: 20081119, end: 20081119
  2. HETASTARCH IN SODIUM CHLORIDE PLASTIC CONTAINER [Suspect]
     Indication: CARDIAC FAILURE CONGESTIVE
     Dosage: 500 ML PER HOUR IV
     Route: 042
     Dates: start: 20081119, end: 20081120

REACTIONS (5)
  - CARDIAC FAILURE [None]
  - CONTRAST MEDIA REACTION [None]
  - MITRAL VALVE INCOMPETENCE [None]
  - NEPHRITIS [None]
  - RENAL TUBULAR NECROSIS [None]
